FAERS Safety Report 4901404-0 (Version None)
Quarter: 2006Q1

REPORT INFORMATION
  Report Type: 
  Country: None (occurrence: None)
  Receive Date: 20060206
  Receipt Date: 20060125
  Transmission Date: 20060701
  Serious: Yes (Hospitalization)
  Sender: FDA-Public Use
  Company Number: 2006AC00191

PATIENT
  Age: 26495 Day
  Sex: Male

DRUGS (6)
  1. IRESSA [Suspect]
     Indication: SQUAMOUS CELL CARCINOMA
     Route: 048
     Dates: start: 20051026, end: 20060117
  2. CETUXIMAB [Suspect]
     Indication: SQUAMOUS CELL CARCINOMA
     Route: 042
     Dates: start: 20051026, end: 20060117
  3. L-THYROXINE [Concomitant]
     Indication: LARYNGECTOMY
     Route: 048
     Dates: start: 20041101
  4. BISOPROLOL [Concomitant]
     Indication: HYPERTENSION
     Route: 048
     Dates: start: 20040101
  5. KLINOTAB [Concomitant]
     Indication: RASH
     Route: 048
     Dates: start: 20051130
  6. FUCIDINE CREAM [Concomitant]
     Indication: RASH
     Route: 003
     Dates: start: 20051228

REACTIONS (4)
  - CONJUNCTIVITIS [None]
  - FATIGUE [None]
  - GENERAL PHYSICAL HEALTH DETERIORATION [None]
  - RASH [None]
